FAERS Safety Report 12935456 (Version 1)
Quarter: 2016Q4

REPORT INFORMATION
  Report Type: Spontaneous
  Country: US (occurrence: US)
  Receive Date: 20161114
  Receipt Date: 20161114
  Transmission Date: 20170207
  Serious: No
  Sender: FDA-Public Use
  Company Number: US-JAZZ-2016-US-018579

PATIENT
  Age: 48 Year
  Sex: Female
  Weight: 69.84 kg

DRUGS (15)
  1. ZALEPLON. [Concomitant]
     Active Substance: ZALEPLON
  2. MELOXICAM. [Concomitant]
     Active Substance: MELOXICAM
  3. AZELASTINE [Concomitant]
     Active Substance: AZELASTINE
  4. AMLODIPINE BESYLATE. [Concomitant]
     Active Substance: AMLODIPINE BESYLATE
  5. IPRATROPIUM [Concomitant]
     Active Substance: IPRATROPIUM
  6. XYREM [Suspect]
     Active Substance: SODIUM OXYBATE
     Indication: NARCOLEPSY
     Dosage: 2.25 G, BID
     Route: 048
     Dates: start: 201609
  7. CHLORTHALIDONE. [Concomitant]
     Active Substance: CHLORTHALIDONE
  8. MAGNESIUM OXIDE. [Concomitant]
     Active Substance: MAGNESIUM OXIDE
  9. POTASSIUM CL [Concomitant]
     Active Substance: POTASSIUM CHLORIDE
  10. ATORVASTATIN [Concomitant]
     Active Substance: ATORVASTATIN
  11. METHOCARBAMOL. [Concomitant]
     Active Substance: METHOCARBAMOL
  12. FLONASE                            /00908302/ [Concomitant]
     Active Substance: MOMETASONE FUROATE
  13. XYREM [Suspect]
     Active Substance: SODIUM OXYBATE
     Indication: SOMNOLENCE
  14. LOSARTAN POTASSIUM. [Concomitant]
     Active Substance: LOSARTAN POTASSIUM
  15. LYRICA [Concomitant]
     Active Substance: PREGABALIN

REACTIONS (4)
  - Micturition urgency [Unknown]
  - Agitation [Unknown]
  - Muscle spasms [Recovering/Resolving]
  - Restlessness [Recovered/Resolved]

NARRATIVE: CASE EVENT DATE: 2016
